FAERS Safety Report 11218704 (Version 1)
Quarter: 2015Q2

REPORT INFORMATION
  Report Type: Spontaneous
  Country: US (occurrence: None)
  Receive Date: 20150623
  Receipt Date: 20150623
  Transmission Date: 20150821
  Serious: No
  Sender: FDA-Public Use
  Company Number: None

PATIENT
  Age: 18 Year
  Sex: Female
  Weight: 65.77 kg

DRUGS (9)
  1. ABILIFY [Suspect]
     Active Substance: ARIPIPRAZOLE
     Indication: BIPOLAR DISORDER
     Dosage: 20,15, 195, + 2MG ?30 MG AS WEEL?1 PILL A DAY CHANGING DOSES THRU OUT 1 DAILY TREATMENT BY MOUTH
     Route: 048
     Dates: start: 20021211
  2. ABILIFY [Concomitant]
     Active Substance: ARIPIPRAZOLE
  3. FOLIC ACID. [Concomitant]
     Active Substance: FOLIC ACID
  4. L-CARNITINE [Concomitant]
     Active Substance: CARNITINE
  5. ADULT MULTI FOR WOMEN [Concomitant]
  6. DEPAKOTE ER [Concomitant]
     Active Substance: DIVALPROEX SODIUM
  7. DIVALPROEX SOD ER [Concomitant]
  8. VITAMIN D [Concomitant]
     Active Substance: CHOLECALCIFEROL
  9. LEVOTHYROXINE [Concomitant]
     Active Substance: LEVOTHYROXINE

REACTIONS (5)
  - Headache [None]
  - Pressure of speech [None]
  - Pain [None]
  - Amnesia [None]
  - Dysmenorrhoea [None]

NARRATIVE: CASE EVENT DATE: 20130101
